FAERS Safety Report 25424997 (Version 1)
Quarter: 2025Q2

REPORT INFORMATION
  Report Type: Spontaneous
  Country: FR (occurrence: FR)
  Receive Date: 20250611
  Receipt Date: 20250611
  Transmission Date: 20250716
  Serious: Yes (Life-Threatening)
  Sender: UCB
  Company Number: None

PATIENT
  Age: 1 Day
  Sex: Female
  Weight: 2.53 kg

DRUGS (4)
  1. KEPPRA [Suspect]
     Active Substance: LEVETIRACETAM
     Indication: Epilepsy
     Dosage: 3 GRAM, ONCE DAILY (QD)
     Dates: start: 20240925, end: 20250508
  2. LAMICTAL [Suspect]
     Active Substance: LAMOTRIGINE
     Indication: Epilepsy
     Dosage: 300 MILLIGRAM, ONCE DAILY (QD)
     Dates: start: 20240925, end: 20250508
  3. ALDOMET [Concomitant]
     Active Substance: METHYLDOPA
     Indication: Hypertension
     Dosage: 750 MILLIGRAM, ONCE DAILY (QD)
  4. TRANDATE [Concomitant]
     Active Substance: LABETALOL HYDROCHLORIDE
     Indication: Product used for unknown indication
     Dosage: 1200 MILLIGRAM, ONCE DAILY (QD)

REACTIONS (3)
  - Premature baby [Recovered/Resolved]
  - Neonatal respiratory distress [Recovered/Resolved with Sequelae]
  - Maternal exposure during pregnancy [Unknown]
